FAERS Safety Report 13089599 (Version 3)
Quarter: 2017Q1

REPORT INFORMATION
  Report Type: Report from Study
  Country: AT (occurrence: AT)
  Receive Date: 20170105
  Receipt Date: 20170119
  Transmission Date: 20170428
  Serious: Yes (Hospitalization)
  Sender: FDA-Public Use
  Company Number: AT-ROCHE-1875244

PATIENT
  Age: 82 Year
  Sex: Male
  Weight: 96 kg

DRUGS (16)
  1. MAXI-KALZ VIT D3 [Concomitant]
     Active Substance: CALCIUM CARBONATE\CHOLECALCIFEROL
     Indication: OSTEOPOROSIS PROPHYLAXIS
     Route: 048
  2. MOXONIDIN STADA [Concomitant]
     Indication: HYPERTENSION
     Route: 048
  3. MEXALEN [Concomitant]
     Active Substance: ACETAMINOPHEN
     Indication: PREMEDICATION
     Route: 048
     Dates: start: 20160218
  4. AMPHO MORONAL [Concomitant]
     Active Substance: AMPHOTERICIN B
     Indication: INFECTION PROPHYLAXIS
     Dosage: 2 OTHER
     Route: 048
     Dates: start: 20160218
  5. ZARZIO [Concomitant]
     Active Substance: FILGRASTIM
     Indication: NEUTROPENIA
     Route: 058
     Dates: start: 20160601
  6. OBINUTUZUMAB [Suspect]
     Active Substance: OBINUTUZUMAB
     Indication: CHRONIC LYMPHOCYTIC LEUKAEMIA
     Dosage: MOST RECENT DOSE ADMINISTERED ON 07/JUL/2016, PRIOR TO THE EVENT
     Route: 042
     Dates: start: 20160218, end: 20160707
  7. FOLSAN [Concomitant]
     Active Substance: FOLIC ACID
     Route: 048
  8. AMLODIPIN [Concomitant]
     Active Substance: AMLODIPINE BESYLATE
     Indication: HYPERTENSION
     Route: 048
     Dates: start: 20160206
  9. PANTOPRAZOL [Concomitant]
     Active Substance: PANTOPRAZOLE SODIUM
     Indication: PROPHYLAXIS
     Route: 048
     Dates: start: 20160220
  10. ALLOPURINOL. [Concomitant]
     Active Substance: ALLOPURINOL
     Indication: HYPERURICAEMIA
     Route: 048
     Dates: start: 20160223
  11. FORTECORTIN [Concomitant]
     Active Substance: DEXAMETHASONE
     Indication: PREMEDICATION
     Route: 042
     Dates: start: 20160217
  12. VENETOCLAX [Suspect]
     Active Substance: VENETOCLAX
     Indication: CHRONIC LYMPHOCYTIC LEUKAEMIA
     Dosage: MOST RECENT DOSE (400 MG) ADMINISTERED ON 04/JAN/2017, PRIOR TO HOSPITALIZATION
     Route: 048
     Dates: start: 20160310
  13. VENORUTON (AUSTRIA) [Concomitant]
     Indication: PERIPHERAL VENOUS DISEASE
     Route: 048
  14. ULCUSAN (AUSTRIA) [Concomitant]
     Indication: PREMEDICATION
     Dosage: 1 AMPULE
     Route: 042
     Dates: start: 20160414
  15. VALACICLOVIR BLU [Concomitant]
     Indication: ORAL HERPES
     Route: 048
     Dates: start: 20160206
  16. DIBONDRIN [Concomitant]
     Active Substance: DIPHENHYDRAMINE HYDROCHLORIDE
     Indication: PREMEDICATION
     Dosage: 1 AMPULE
     Route: 042
     Dates: start: 20160218

REACTIONS (1)
  - Bronchitis [Recovered/Resolved]

NARRATIVE: CASE EVENT DATE: 20161231
